FAERS Safety Report 25630914 (Version 1)
Quarter: 2025Q3

REPORT INFORMATION
  Report Type: Spontaneous
  Country: EU (occurrence: EU)
  Receive Date: 20250801
  Receipt Date: 20250801
  Transmission Date: 20251020
  Serious: Yes (Hospitalization, Other)
  Sender: AUROBINDO
  Company Number: EU-AFSSAPS-PA2025000674

PATIENT
  Age: 48 Year
  Sex: Male

DRUGS (3)
  1. LINEZOLID [Suspect]
     Active Substance: LINEZOLID
     Indication: Escherichia bacteraemia
     Dosage: 600 MILLIGRAM, TWO TIMES A DAY
     Route: 042
     Dates: start: 20250627, end: 20250701
  2. MEROPENEM [Suspect]
     Active Substance: MEROPENEM
     Indication: Escherichia bacteraemia
     Dosage: 2 GRAM, FOUR TIMES/DAY
     Route: 042
     Dates: start: 20250626, end: 20250704
  3. FLUCONAZOLE [Suspect]
     Active Substance: FLUCONAZOLE
     Indication: Escherichia bacteraemia
     Dosage: 200 MILLIGRAM, ONCE A DAY
     Route: 042
     Dates: start: 20250627, end: 20250701

REACTIONS (1)
  - Thrombocytopenia [Recovering/Resolving]

NARRATIVE: CASE EVENT DATE: 20250701
